FAERS Safety Report 8419533-6 (Version None)
Quarter: 2012Q2

REPORT INFORMATION
  Report Type: 
  Country: None (occurrence: None)
  Receive Date: 20120607
  Receipt Date: 20120301
  Transmission Date: 20120825
  Serious: No
  Sender: FDA-Public Use
  Company Number: US-BRISTOL-MYERS SQUIBB COMPANY-16347718

PATIENT
  Age: 33 Year
  Sex: Female
  Weight: 93 kg

DRUGS (4)
  1. VIRAMUNE [Suspect]
     Indication: HIV TEST
  2. SUSTIVA [Suspect]
     Indication: HIV TEST
  3. VIREAD [Suspect]
     Indication: HIV TEST
  4. AZT [Suspect]
     Indication: HIV TEST

REACTIONS (5)
  - PREGNANCY [None]
  - MIGRAINE [None]
  - DECREASED APPETITE [None]
  - MALAISE [None]
  - WEIGHT DECREASED [None]
